FAERS Safety Report 10086915 (Version 1)
Quarter: 2014Q2

REPORT INFORMATION
  Report Type: Spontaneous
  Country: IT (occurrence: IT)
  Receive Date: 20140418
  Receipt Date: 20140418
  Transmission Date: 20141212
  Serious: Yes (Hospitalization)
  Sender: FDA-Public Use
  Company Number: IT-ELI_LILLY_AND_COMPANY-IT201404004273

PATIENT
  Age: 76 Year
  Sex: Male

DRUGS (1)
  1. ALIMTA [Suspect]
     Indication: LUNG ADENOCARCINOMA METASTATIC
     Dosage: 500 MG, UNKNOWN
     Route: 042
     Dates: start: 20140203, end: 20140206

REACTIONS (2)
  - Renal failure acute [Recovered/Resolved]
  - Dehydration [Recovered/Resolved]
